FAERS Safety Report 9762299 (Version 2)
Quarter: 2014Q2

REPORT INFORMATION
  Report Type: Spontaneous
  Country: US (occurrence: US)
  Receive Date: 20131216
  Receipt Date: 20140501
  Transmission Date: 20141212
  Serious: No
  Sender: FDA-Public Use
  Company Number: US-BIOGENIDEC-2013BI102522

PATIENT
  Age: 65 Year
  Sex: Male

DRUGS (19)
  1. TECFIDERA [Suspect]
     Indication: MULTIPLE SCLEROSIS
     Dates: start: 201310, end: 201310
  2. TECFIDERA [Suspect]
     Indication: MULTIPLE SCLEROSIS
     Route: 048
     Dates: start: 20131002, end: 20131029
  3. TYSABRI [Concomitant]
  4. AMPYRA [Concomitant]
     Dates: start: 201107
  5. VITAMIN D3 [Concomitant]
  6. LOSARTAN HCT [Concomitant]
  7. FENOFIBRATE [Concomitant]
  8. TAMSULOSIN HYDROCHLORIDE [Concomitant]
  9. ZOLPIDEM TARTRATE [Concomitant]
  10. VENLAFAXINE [Concomitant]
  11. GABAPENTIN [Concomitant]
     Indication: PRODUCT USED FOR UNKNOWN INDICATION
  12. BACLOFEN [Concomitant]
  13. LOSARTAN POTASSIUM/HYDROC [Concomitant]
  14. HYDROCODONE BITARTRATE AND ACETAMINOPHEN [Concomitant]
  15. METFORMIN HYDROCHLORIDE [Concomitant]
  16. DOCUSATE SODIUM [Concomitant]
  17. TRILEPTAL [Concomitant]
  18. AMITRIPTYLINE HCL [Concomitant]
  19. REBIF [Concomitant]
     Indication: MULTIPLE SCLEROSIS
     Route: 058

REACTIONS (9)
  - Skin lesion [Unknown]
  - Blister [Unknown]
  - Headache [Unknown]
  - Muscle spasms [Unknown]
  - Rash [Unknown]
  - Erythema [Unknown]
  - Pruritus [Unknown]
  - Flushing [Unknown]
  - Abdominal discomfort [Unknown]
